FAERS Safety Report 18942811 (Version 1)
Quarter: 2021Q1

REPORT INFORMATION
  Report Type: Spontaneous
  Country: JP (occurrence: JP)
  Receive Date: 20210225
  Receipt Date: 20210225
  Transmission Date: 20210420
  Serious: Yes (Hospitalization, Other)
  Sender: FDA-Public Use
  Company Number: JP-JNJFOC-20210240695

PATIENT
  Age: 96 Year
  Sex: Male
  Weight: 30.2 kg

DRUGS (9)
  1. APO LANSOPRAZOLE ODT [Concomitant]
     Dosage: DAILY DOSE 15 MG
     Route: 048
  2. BISOPROLOL FUMARATE. [Concomitant]
     Active Substance: BISOPROLOL FUMARATE
     Indication: ATRIAL FIBRILLATION
     Dosage: DAILY DOSE 1.25 MG
     Route: 048
  3. MAGMITT [Concomitant]
     Active Substance: MAGNESIUM OXIDE
     Indication: CONSTIPATION
     Dosage: DAILY DOSE 330 MG
     Route: 048
  4. NAFTOPIDIL [Concomitant]
     Active Substance: NAFTOPIDIL
     Indication: DYSURIA
     Dosage: DAILY DOSE 50 MG
     Route: 048
  5. SODIUM PICOSULFATE [Concomitant]
     Active Substance: SODIUM PICOSULFATE
     Indication: CONSTIPATION
     Dosage: DAILY DOSE 5 MG
     Route: 048
  6. XARELTO [Suspect]
     Active Substance: RIVAROXABAN
     Indication: ATRIAL FIBRILLATION
     Dosage: 10 MG, QD
     Route: 048
  7. DONEPEZIL HYDROCHLORIDE OD KUNIHIRO [Concomitant]
     Indication: DEMENTIA
     Dosage: DAILY DOSE 3 MG
     Route: 048
  8. CALONAL [Concomitant]
     Active Substance: ACETAMINOPHEN
     Indication: COMPRESSION FRACTURE
     Dosage: DAILY DOSE 400 MG
     Route: 048
  9. ALFACALCIDOL [Concomitant]
     Active Substance: ALFACALCIDOL
     Indication: OSTEOPOROSIS
     Dosage: DAILY DOSE 0.25 UG
     Route: 048

REACTIONS (9)
  - International normalised ratio increased [Unknown]
  - Activated partial thromboplastin time prolonged [Unknown]
  - Pneumonia aspiration [Unknown]
  - Prothrombin level decreased [Unknown]
  - Pneumonia [Unknown]
  - Pneumonia aspiration [Unknown]
  - Back pain [Unknown]
  - Prothrombin time prolonged [Unknown]
  - Spinal compression fracture [Unknown]

NARRATIVE: CASE EVENT DATE: 20201019
